FAERS Safety Report 15533541 (Version 1)
Quarter: 2018Q4

REPORT INFORMATION
  Report Type: Spontaneous
  Country: MX (occurrence: MX)
  Receive Date: 20181019
  Receipt Date: 20181019
  Transmission Date: 20190205
  Serious: Yes (Other)
  Sender: FDA-Public Use
  Company Number: PHHY2018MX128394

PATIENT
  Age: 39 Year
  Sex: Female

DRUGS (2)
  1. DEXAMETHASONE,TOBRAMYCIN [Suspect]
     Active Substance: DEXAMETHASONE\TOBRAMYCIN
     Indication: BLEPHARITIS
     Route: 061
  2. PREDNISOLONE ACETATE. [Suspect]
     Active Substance: PREDNISOLONE ACETATE
     Indication: BLEPHARITIS
     Route: 061

REACTIONS (3)
  - Corneal disorder [Unknown]
  - Keratopathy [Recovering/Resolving]
  - Eye disorder [Recovering/Resolving]
